FAERS Safety Report 6538702-3 (Version None)
Quarter: 2010Q1

REPORT INFORMATION
  Report Type: 
  Country: None (occurrence: None)
  Receive Date: 20100113
  Receipt Date: 20100113
  Transmission Date: 20100710
  Serious: Yes (Hospitalization, Other)
  Sender: FDA-Public Use
  Company Number: None

PATIENT
  Age: 42 Year
  Sex: Male
  Weight: 83.9154 kg

DRUGS (1)
  1. TARGET SUNSCREEN SPF 50 TARGET / FRUIT OF THE EARTH [Suspect]

REACTIONS (4)
  - INJURY [None]
  - PAIN [None]
  - PRODUCT QUALITY ISSUE [None]
  - THERMAL BURN [None]
